FAERS Safety Report 17985285 (Version 1)
Quarter: 2020Q3

REPORT INFORMATION
  Report Type: Spontaneous
  Country: IT (occurrence: IT)
  Receive Date: 20200706
  Receipt Date: 20200706
  Transmission Date: 20201103
  Serious: Yes (Death, Hospitalization, Other)
  Sender: FDA-Public Use
  Company Number: IT-AMGEN-ITASP2020105981

PATIENT

DRUGS (5)
  1. DEXAMETHASONE. [Concomitant]
     Active Substance: DEXAMETHASONE
     Indication: PLASMA CELL MYELOMA
     Dosage: 40 MG ON DAYS 1, 8, 15, AND 22; OR 20 MG ON DAYS 1, 2, 8, 9, 15, 16, 22, AND 23
     Dates: start: 201604
  2. CARFILZOMIB [Suspect]
     Active Substance: CARFILZOMIB
     Dosage: 27 MILLIGRAM/SQ. METER, ON DAYS 1, 2, 15, AND 16 FROM CYCLE 13 TO 18
     Route: 042
     Dates: end: 201804
  3. CARFILZOMIB [Suspect]
     Active Substance: CARFILZOMIB
     Dosage: 27 MILLIGRAM/SQ. METER, ON DAYS 1, 2, 8, 9, 15 AND 16 FROM CYCLE 1 TO 12
     Route: 042
     Dates: start: 2016
  4. LENALIDOMIDE [Concomitant]
     Active Substance: LENALIDOMIDE
     Indication: PLASMA CELL MYELOMA
     Dosage: 25 MILLIGRAM, FROM DAY 1 TO 21 OF EACH CYCLE
     Route: 048
     Dates: start: 201604
  5. CARFILZOMIB [Suspect]
     Active Substance: CARFILZOMIB
     Indication: PLASMA CELL MYELOMA
     Dosage: 20 MILLIGRAM/SQ. METER, ON DAY 1 AND 2 OF CYCLE 1
     Route: 042
     Dates: start: 201604

REACTIONS (29)
  - Deep vein thrombosis [Unknown]
  - Infection [Unknown]
  - Toxicity to various agents [Unknown]
  - Disease progression [Fatal]
  - Prostate cancer recurrent [Unknown]
  - Death [Fatal]
  - Performance status decreased [Unknown]
  - Therapy partial responder [Unknown]
  - Pyrexia [Unknown]
  - Cardiac amyloidosis [Unknown]
  - Cardiac arrest [Recovered/Resolved]
  - Pulmonary embolism [Unknown]
  - Oesophageal carcinoma [Unknown]
  - Myocardial infarction [Unknown]
  - Atrial fibrillation [Unknown]
  - Drug ineffective [Unknown]
  - Cholangiocarcinoma [Fatal]
  - Adenocarcinoma pancreas [Fatal]
  - Renal failure [Fatal]
  - Hypertension [Unknown]
  - Neoplasm [Fatal]
  - Tumour lysis syndrome [Unknown]
  - Thrombocytopenia [Unknown]
  - Sepsis [Fatal]
  - Haemoptysis [Fatal]
  - Plasma cell myeloma [Unknown]
  - Cardiac failure [Unknown]
  - Neutropenia [Unknown]
  - Anaemia [Unknown]
